FAERS Safety Report 5974453-1 (Version None)
Quarter: 2008Q4

REPORT INFORMATION
  Report Type: 
  Country: None (occurrence: None)
  Receive Date: 20081201
  Receipt Date: 20081124
  Transmission Date: 20090506
  Serious: Yes (Other)
  Sender: FDA-Public Use
  Company Number: BR-PFIZER INC-2008097978

PATIENT
  Sex: Female
  Weight: 46 kg

DRUGS (2)
  1. FRONTAL [Suspect]
     Indication: ANXIETY
     Route: 048
     Dates: start: 19940101
  2. FRONTAL [Suspect]
     Indication: NERVOUSNESS

REACTIONS (4)
  - DRUG DEPENDENCE [None]
  - DYSGEUSIA [None]
  - LEIOMYOMA [None]
  - TENSION [None]
